FAERS Safety Report 4847367-8 (Version None)
Quarter: 2005Q4

REPORT INFORMATION
  Report Type: 
  Country: None (occurrence: None)
  Receive Date: 20051207
  Receipt Date: 20051010
  Transmission Date: 20060501
  Serious: Yes (Other)
  Sender: FDA-Public Use
  Company Number: US-ROCHE-420843

PATIENT
  Age: 16 Year
  Sex: Male
  Weight: 65 kg

DRUGS (1)
  1. ACCUTANE [Suspect]
     Indication: DRUG USE FOR UNKNOWN INDICATION
     Route: 048
     Dates: start: 20050705, end: 20051003

REACTIONS (3)
  - BLINDNESS [None]
  - MIGRAINE [None]
  - SENSORY LOSS [None]
